FAERS Safety Report 10842190 (Version 4)
Quarter: 2015Q3

REPORT INFORMATION
  Report Type: Report from Study
  Country: DE (occurrence: DE)
  Receive Date: 20150220
  Receipt Date: 20150811
  Transmission Date: 20151125
  Serious: Yes (Hospitalization)
  Sender: FDA-Public Use
  Company Number: DE-ROCHE-1540490

PATIENT
  Age: 65 Year
  Sex: Female
  Weight: 86.5 kg

DRUGS (1)
  1. TRASTUZUMAB [Suspect]
     Active Substance: TRASTUZUMAB
     Indication: BREAST CANCER
     Route: 058
     Dates: start: 20140520, end: 20150511

REACTIONS (7)
  - Gastroenteritis [Recovered/Resolved]
  - Hypertensive crisis [Recovered/Resolved]
  - Restlessness [Recovered/Resolved]
  - Dizziness [Unknown]
  - Panic attack [Recovered/Resolved]
  - Palpitations [Recovered/Resolved]
  - Pyrexia [Recovered/Resolved]

NARRATIVE: CASE EVENT DATE: 20150128
